FAERS Safety Report 10227224 (Version 1)
Quarter: 2014Q2

REPORT INFORMATION
  Report Type: Spontaneous
  Country: IN (occurrence: None)
  Receive Date: 20140606
  Receipt Date: 20140606
  Transmission Date: 20141212
  Serious: Yes (Other)
  Sender: FDA-Public Use
  Company Number: FK201402146

PATIENT
  Age: 44 Year
  Sex: Female

DRUGS (6)
  1. CARBOPLATIN [Suspect]
     Indication: PLEURAL EFFUSION
     Dosage: AUC 5
     Dates: start: 201001
  2. CARBOPLATIN [Suspect]
     Indication: LYMPHADENOPATHY MEDIASTINAL
     Dosage: AUC 5
     Dates: start: 201001
  3. CARBOPLATIN [Suspect]
     Indication: ABDOMINAL LYMPHADENOPATHY
     Dosage: AUC 5
     Dates: start: 201001
  4. DOXORUBICIN [Suspect]
     Indication: PLEURAL EFFUSION
     Dates: start: 201001
  5. DOXORUBICIN [Suspect]
     Indication: LYMPHADENOPATHY MEDIASTINAL
     Dates: start: 201001
  6. DOXORUBICIN [Suspect]
     Indication: ABDOMINAL LYMPHADENOPATHY
     Dates: start: 201001

REACTIONS (11)
  - Neutropenia [None]
  - Thrombocytopenia [None]
  - Neoplasm recurrence [None]
  - Ovarian cancer stage III [None]
  - Pleural effusion [None]
  - Lymphadenopathy mediastinal [None]
  - Abdominal lymphadenopathy [None]
  - Carbohydrate antigen 125 increased [None]
  - Toxicity to various agents [None]
  - Fatigue [None]
  - Dyspnoea exertional [None]
